FAERS Safety Report 4263738-5 (Version None)
Quarter: 2004Q1

REPORT INFORMATION
  Report Type: 
  Country: None (occurrence: None)
  Receive Date: 20040102
  Receipt Date: 20031222
  Transmission Date: 20041129
  Serious: Yes (Hospitalization, Other)
  Sender: FDA-Public Use
  Company Number: 2003116896

PATIENT
  Age: 68 Year
  Sex: Female
  Weight: 66 kg

DRUGS (10)
  1. ZITHROMAX [Suspect]
     Indication: ILL-DEFINED DISORDER
     Dosage: 500 MG (BID), ORAL
     Route: 048
     Dates: start: 20031001, end: 20031001
  2. GLYBURIDE [Concomitant]
  3. FLUVASTATIN SODIUM (FLUVASTATIN SODIUM) [Concomitant]
  4. PROCATEROL HYDROCHLORIDE (PROCATEROL HYDROCHLORIDE) [Concomitant]
  5. MONTELUKAST SODIUM (MONTELUKAST SODIUM) [Concomitant]
  6. THEOPHYLLINE [Concomitant]
  7. CILNIDIPINE (CILNIDIPINE) [Concomitant]
  8. TIZANIDINE HCL [Concomitant]
  9. TIPEPIDINE HIBENZATE (TIPEPIDINE HIBENZATE) [Concomitant]
  10. CARBOCISTEINE (CARBOCISTEINE) [Concomitant]

REACTIONS (7)
  - ALLERGIC GRANULOMATOUS ANGIITIS [None]
  - BLOOD ALKALINE PHOSPHATASE INCREASED [None]
  - BLOOD BILIRUBIN INCREASED [None]
  - BLOOD GLUCOSE DECREASED [None]
  - BLOOD LACTATE DEHYDROGENASE INCREASED [None]
  - EOSINOPHIL COUNT INCREASED [None]
  - GAMMA-GLUTAMYLTRANSFERASE INCREASED [None]
